FAERS Safety Report 6428211-4 (Version None)
Quarter: 2009Q4

REPORT INFORMATION
  Report Type: 
  Country: None (occurrence: None)
  Receive Date: 20091105
  Receipt Date: 20091028
  Transmission Date: 20100525
  Serious: Yes (Hospitalization)
  Sender: FDA-Public Use
  Company Number: GB-BAXTER-2009BH016714

PATIENT
  Age: 23 Year
  Sex: Male

DRUGS (51)
  1. CERNEVIT-12 [Suspect]
     Indication: DRUG USE FOR UNKNOWN INDICATION
     Route: 065
  2. OCTACOSANOL [Suspect]
     Indication: DRUG USE FOR UNKNOWN INDICATION
     Route: 065
  3. CALAMUS [Suspect]
     Indication: DRUG USE FOR UNKNOWN INDICATION
     Route: 065
  4. LACTOBACILLUS ACIDOPHILUS [Suspect]
     Indication: DRUG USE FOR UNKNOWN INDICATION
     Route: 065
  5. RHODIOLA [Suspect]
     Indication: DRUG USE FOR UNKNOWN INDICATION
     Route: 065
  6. 5-HYDROXYTRYPTOPHAN [Suspect]
     Indication: DRUG USE FOR UNKNOWN INDICATION
     Route: 065
  7. ANIRACETAM [Suspect]
     Indication: DRUG USE FOR UNKNOWN INDICATION
     Route: 065
  8. BACOPA MONNIERA [Suspect]
     Indication: DRUG USE FOR UNKNOWN INDICATION
     Route: 065
  9. BIFIDOBACTERIUM BIFIDUS [Suspect]
     Indication: DRUG USE FOR UNKNOWN INDICATION
     Route: 065
  10. CALCIUM [Suspect]
     Indication: DRUG USE FOR UNKNOWN INDICATION
     Route: 065
  11. CHROMIUM [Suspect]
     Indication: DRUG USE FOR UNKNOWN INDICATION
     Route: 065
  12. CHROMIUM PICOLINATE [Suspect]
     Indication: DRUG USE FOR UNKNOWN INDICATION
     Route: 065
  13. COENZYME Q10 [Suspect]
     Indication: DRUG USE FOR UNKNOWN INDICATION
     Route: 065
  14. COLA ACUMINATA [Suspect]
     Indication: DRUG USE FOR UNKNOWN INDICATION
     Route: 065
  15. LINOLEIC ACID [Suspect]
     Indication: DRUG USE FOR UNKNOWN INDICATION
     Route: 065
  16. ECLIPTA ALBA [Suspect]
     Indication: DRUG USE FOR UNKNOWN INDICATION
     Route: 065
  17. ELETTARIA CARDAMOMUM [Suspect]
     Indication: DRUG USE FOR UNKNOWN INDICATION
     Route: 065
  18. FOLIC ACID [Suspect]
     Indication: DRUG USE FOR UNKNOWN INDICATION
     Route: 065
  19. FUCOXANTHIN [Suspect]
     Indication: DRUG USE FOR UNKNOWN INDICATION
     Route: 065
  20. GINGER [Suspect]
     Indication: DRUG USE FOR UNKNOWN INDICATION
     Route: 065
  21. GINSENG [Suspect]
     Indication: DRUG USE FOR UNKNOWN INDICATION
     Route: 065
  22. GLUCURONOLACTONE [Suspect]
     Indication: DRUG USE FOR UNKNOWN INDICATION
     Route: 065
  23. GREEN TEA EXTRACT [Suspect]
     Indication: DRUG USE FOR UNKNOWN INDICATION
     Route: 065
  24. GUARANA [Suspect]
     Indication: DRUG USE FOR UNKNOWN INDICATION
     Route: 065
  25. HOODIA GORDONII [Suspect]
     Indication: DRUG USE FOR UNKNOWN INDICATION
     Route: 065
  26. HYDROCOYLE ASIATICA [Suspect]
     Indication: DRUG USE FOR UNKNOWN INDICATION
     Route: 065
  27. LEVOCARNITINE [Suspect]
     Indication: DRUG USE FOR UNKNOWN INDICATION
     Route: 065
  28. LEPIDIUM MEYENII [Suspect]
     Indication: DRUG USE FOR UNKNOWN INDICATION
     Route: 065
  29. MAGNESIUM [Suspect]
     Indication: DRUG USE FOR UNKNOWN INDICATION
     Route: 065
  30. MAGNESIUM CITRATE [Suspect]
     Indication: DRUG USE FOR UNKNOWN INDICATION
     Route: 065
  31. MULTI-VITAMINS [Suspect]
     Indication: DRUG USE FOR UNKNOWN INDICATION
     Route: 065
  32. NICOTINAMIDE [Suspect]
     Indication: DRUG USE FOR UNKNOWN INDICATION
     Route: 065
  33. NADIDE [Suspect]
     Indication: DRUG USE FOR UNKNOWN INDICATION
     Route: 065
  34. PSYLLIUM [Suspect]
     Indication: DRUG USE FOR UNKNOWN INDICATION
     Route: 065
  35. RHODIOLA ROSEA [Suspect]
     Indication: DRUG USE FOR UNKNOWN INDICATION
     Route: 065
  36. S-ADENOSYL-L-METHIONINE [Suspect]
     Indication: DRUG USE FOR UNKNOWN INDICATION
     Route: 065
  37. SELENIUM [Suspect]
     Indication: DRUG USE FOR UNKNOWN INDICATION
     Route: 065
  38. SIBERIAN GINSENG [Suspect]
     Indication: DRUG USE FOR UNKNOWN INDICATION
     Route: 065
  39. ST JOHNS WORT [Suspect]
     Indication: DRUG USE FOR UNKNOWN INDICATION
     Route: 065
  40. SUCROSE [Suspect]
     Indication: DRUG USE FOR UNKNOWN INDICATION
     Route: 065
  41. THEOBROMINE [Suspect]
     Indication: DRUG USE FOR UNKNOWN INDICATION
     Route: 065
  42. TINOSPORA CORDIFOLIA [Suspect]
     Indication: DRUG USE FOR UNKNOWN INDICATION
     Route: 065
  43. VITAMIN A [Suspect]
     Indication: DRUG USE FOR UNKNOWN INDICATION
     Route: 065
  44. NICOTINIC ACID [Suspect]
     Indication: DRUG USE FOR UNKNOWN INDICATION
     Route: 065
  45. VITAMIN B6 [Suspect]
     Indication: DRUG USE FOR UNKNOWN INDICATION
     Route: 065
  46. ASCORBIC ACID [Suspect]
     Indication: DRUG USE FOR UNKNOWN INDICATION
     Route: 065
  47. VITAMIN E [Suspect]
     Indication: DRUG USE FOR UNKNOWN INDICATION
     Route: 065
  48. WITHANIA SOMNIFERA [Suspect]
     Indication: DRUG USE FOR UNKNOWN INDICATION
     Route: 065
  49. ZINC [Suspect]
     Indication: DRUG USE FOR UNKNOWN INDICATION
     Route: 065
  50. COLA NITIDA [Suspect]
     Indication: DRUG USE FOR UNKNOWN INDICATION
     Route: 065
  51. CAMELIA SINENSIS [Suspect]
     Indication: DRUG USE FOR UNKNOWN INDICATION
     Route: 065

REACTIONS (1)
  - MANIA [None]
